FAERS Safety Report 9161657 (Version 4)
Quarter: 2013Q2

REPORT INFORMATION
  Report Type: Spontaneous
  Country: JP (occurrence: JP)
  Receive Date: 20130314
  Receipt Date: 20130517
  Transmission Date: 20140414
  Serious: Yes (Other)
  Sender: FDA-Public Use
  Company Number: JP-AMGEN-JPNSP2013016448

PATIENT
  Age: 62 Year
  Sex: Female

DRUGS (11)
  1. ARANESP [Suspect]
     Indication: NEPHROGENIC ANAEMIA
     Dosage: 120 MUG, QWK
     Route: 040
     Dates: start: 20071221
  2. LIPITOR [Concomitant]
     Dosage: 10 MG, QD
     Route: 048
  3. ALLEGRA [Concomitant]
     Dosage: 60 MG, QD
     Route: 048
  4. SELBEX [Concomitant]
     Dosage: 3 DF, TID
     Route: 048
  5. PERYCIT [Concomitant]
     Dosage: 250 MG, BID
     Route: 048
  6. ALFAROL [Concomitant]
     Dosage: 0.25 MUG, QD
     Route: 048
  7. ALFAROL [Concomitant]
     Dosage: 0.25 MUG, QD
     Route: 048
  8. ALFAROL [Concomitant]
     Dosage: 0.25 MUG, QD
  9. TAKEPRON [Concomitant]
     Dosage: 15 DF, QD
     Route: 048
  10. NEORAL [Concomitant]
     Dosage: 200 MG, QD
     Route: 048
  11. BACTRAMIN [Concomitant]
     Dosage: UNK
     Route: 048

REACTIONS (1)
  - Aplasia pure red cell [Recovered/Resolved]
